FAERS Safety Report 9914148 (Version 1)
Quarter: 2014Q1

REPORT INFORMATION
  Report Type: Spontaneous
  Country: US (occurrence: None)
  Receive Date: 20140218
  Receipt Date: 20140218
  Transmission Date: 20141002
  Serious: Yes (Hospitalization, Other)
  Sender: FDA-Public Use
  Company Number: 2014HINLIT0119

PATIENT
  Age: 31 Year
  Sex: Female

DRUGS (3)
  1. TENOFOVIR (TENOFOVIR) UNKNOWN [Suspect]
     Indication: ANTIRETROVIRAL THERAPY
  2. RALTEGRAVIR (RALTEGRAVIR) [Suspect]
     Indication: ANTIRETROVIRAL THERAPY
  3. EMTRICITABINE [Suspect]
     Indication: ANTIRETROVIRAL THERAPY

REACTIONS (1)
  - Drug reaction with eosinophilia and systemic symptoms [None]
